FAERS Safety Report 5739778-3 (Version None)
Quarter: 2008Q2

REPORT INFORMATION
  Report Type: 
  Country: None (occurrence: None)
  Receive Date: 20080512
  Receipt Date: 20080512
  Transmission Date: 20081010
  Serious: No
  Sender: FDA-Public Use
  Company Number: None

PATIENT
  Age: 56 Year
  Sex: Female
  Weight: 53.0709 kg

DRUGS (1)
  1. RECLAST [Suspect]
     Indication: RESORPTION BONE INCREASED
     Dosage: ONCE A YEAR
     Dates: start: 20071015, end: 20080509

REACTIONS (2)
  - PAIN IN EXTREMITY [None]
  - VITAMIN D DECREASED [None]
